FAERS Safety Report 5621088-6 (Version None)
Quarter: 2008Q1

REPORT INFORMATION
  Report Type: 
  Country: None (occurrence: None)
  Receive Date: 20080114
  Receipt Date: 20070109
  Transmission Date: 20080703
  Serious: Yes (Hospitalization)
  Sender: FDA-Public Use
  Company Number: A03200700296

PATIENT
  Sex: Male

DRUGS (3)
  1. PLAVIX [Suspect]
     Indication: ANTICOAGULANT THERAPY
     Dosage: 75 MG QD - ORAL
     Route: 049
     Dates: start: 20060829
  2. ASPIRIN [Suspect]
     Indication: CORONARY ARTERY DISEASE
     Dosage: 81 MG QD - ORAL
     Route: 048
     Dates: start: 20060420, end: 20061214
  3. BLINDED STUDY MEDICATION [Suspect]
     Indication: PERCUTANEOUS CORONARY INTERVENTION
     Dates: start: 20060827, end: 20061031

REACTIONS (4)
  - HAEMATURIA [None]
  - HYPERPLASIA [None]
  - PROSTATITIS [None]
  - URETHRITIS [None]
